FAERS Safety Report 9813757 (Version 1)
Quarter: 2014Q1

REPORT INFORMATION
  Report Type: Spontaneous
  Country: AU (occurrence: AU)
  Receive Date: 20140113
  Receipt Date: 20140113
  Transmission Date: 20141002
  Serious: Yes (Hospitalization)
  Sender: FDA-Public Use
  Company Number: AU-ACTAVIS-2013-24377

PATIENT
  Age: 43 Year
  Sex: Female
  Weight: 55 kg

DRUGS (7)
  1. DOCETAXEL (UNKNOWN) [Suspect]
     Indication: BREAST CANCER
     Dosage: 120 MG EVERY 3 WEEKS
     Route: 042
     Dates: start: 20131204, end: 20131204
  2. GRANULOCYTE COLONY-STIMULATING FACTOR NOS [Suspect]
     Indication: NEUTROPENIA
     Dosage: 7425 MCG EVERY 3 WEEKS
     Route: 058
     Dates: start: 20131205, end: 20131205
  3. CYCLOPHOSPHAMIDE [Suspect]
     Indication: BREAST CANCER
     Dosage: 950 MG EVERY 3 WEEKS
     Route: 042
     Dates: start: 20131204, end: 20131204
  4. PULMICORT [Concomitant]
     Indication: PRODUCT USED FOR UNKNOWN INDICATION
     Dosage: UNK, UNKNOWN
     Route: 065
  5. PARACETAMOL [Concomitant]
     Indication: PRODUCT USED FOR UNKNOWN INDICATION
     Dosage: UNK, UNKNOWN
     Route: 065
  6. MOTILIUM                           /00498201/ [Concomitant]
     Indication: PRODUCT USED FOR UNKNOWN INDICATION
     Dosage: UNK, UNKNOWN
     Route: 065
  7. TEMAZEPAM [Concomitant]
     Indication: PRODUCT USED FOR UNKNOWN INDICATION
     Dosage: UNK, UNKNOWN
     Route: 065

REACTIONS (1)
  - Gastritis viral [Recovered/Resolved]
